FAERS Safety Report 6424061-3 (Version None)
Quarter: 2009Q4

REPORT INFORMATION
  Report Type: 
  Country: None (occurrence: None)
  Receive Date: 20091102
  Receipt Date: 20091029
  Transmission Date: 20100525
  Serious: Yes (Hospitalization)
  Sender: FDA-Public Use
  Company Number: DE-WYE-G04715309

PATIENT
  Age: 32 Year
  Weight: 66 kg

DRUGS (20)
  1. BENEFIX [Suspect]
     Indication: FACTOR IX DEFICIENCY
     Dosage: 2X PER WEEK, SINGLE DOSE UNKNOWN
     Route: 042
     Dates: start: 19990101
  2. BENEFIX [Suspect]
     Dosage: PREOPERATIVE TWO SINGLE DOSES (4000 AND 6000 IU), THEN 4000 IU PER DAY FOR 2 DAYS
     Route: 042
  3. BENEFIX [Suspect]
     Route: 042
  4. NORVIR [Concomitant]
  5. PREZISTA [Concomitant]
  6. PROPRANOLOL [Concomitant]
  7. SPIRONOLACTONE [Concomitant]
  8. FUROSEMIDE [Concomitant]
  9. TAMSULOSIN HYDROCHLORIDE [Concomitant]
  10. URSODIOL [Concomitant]
  11. AMITRIPTYLINE [Concomitant]
  12. SODIUM CHLORIDE [Concomitant]
  13. POTASSIUM CHLORIDE [Concomitant]
  14. ESOMEPRAZOLE MAGNESIUM [Concomitant]
  15. VITAMIN K TAB [Concomitant]
  16. MACROGOL [Concomitant]
  17. PIPAMPERONE [Concomitant]
  18. DRONABINOL [Concomitant]
  19. BETHANECHOL CHLORIDE [Concomitant]
  20. TRUVADA [Concomitant]

REACTIONS (2)
  - DENTAL CARIES [None]
  - PERIODONTITIS [None]
